FAERS Safety Report 7005387-1 (Version None)
Quarter: 2010Q3

REPORT INFORMATION
  Report Type: 
  Country: None (occurrence: None)
  Receive Date: 20100921
  Receipt Date: 20100913
  Transmission Date: 20110219
  Serious: Yes (Hospitalization)
  Sender: FDA-Public Use
  Company Number: AR-ROCHE-700755

PATIENT
  Sex: Male

DRUGS (3)
  1. MYCOPHENOLATE MOFETIL [Suspect]
     Route: 065
     Dates: start: 20061119, end: 20100407
  2. BELATACEPT [Suspect]
     Route: 042
     Dates: start: 20061119
  3. PREDNISONE [Suspect]
     Route: 065
     Dates: start: 20061119

REACTIONS (3)
  - DIABETIC FOOT [None]
  - LOCALISED INFECTION [None]
  - RENAL FAILURE ACUTE [None]
